FAERS Safety Report 7514633-7 (Version None)
Quarter: 2011Q2

REPORT INFORMATION
  Report Type: 
  Country: None (occurrence: None)
  Receive Date: 20110422
  Receipt Date: 20110114
  Transmission Date: 20111010
  Serious: Yes (Other)
  Sender: FDA-Public Use
  Company Number: APP201100053

PATIENT
  Age: 73 Year
  Sex: Male
  Weight: 115 kg

DRUGS (5)
  1. HEPARIN SODIUM [Suspect]
     Indication: CORONARY ARTERY BYPASS
     Dosage: SEE IMAGE
     Dates: start: 20110113, end: 20110113
  2. HEPARIN SODIUM [Suspect]
     Indication: CORONARY ARTERY BYPASS
     Dosage: SEE IMAGE
     Dates: start: 20110113, end: 20110113
  3. HEPARIN SODIUM [Suspect]
     Indication: CORONARY ARTERY BYPASS
     Dosage: SEE IMAGE
     Dates: start: 20110113, end: 20110113
  4. HEPARIN SODIUM [Suspect]
     Indication: CORONARY ARTERY BYPASS
     Dosage: SEE IMAGE
     Dates: start: 20110113, end: 20110113
  5. HEPARIN SODIUM [Suspect]
     Dosage: SEE IMAGE
     Dates: start: 20110113, end: 20110113

REACTIONS (1)
  - DRUG INEFFECTIVE [None]
